FAERS Safety Report 18011335 (Version 1)
Quarter: 2020Q3

REPORT INFORMATION
  Report Type: Spontaneous
  Country: JP (occurrence: JP)
  Receive Date: 20200712
  Receipt Date: 20200712
  Transmission Date: 20201103
  Serious: Yes (Hospitalization, Other)
  Sender: FDA-Public Use
  Company Number: NVSJ2020JP006620

PATIENT
  Age: 81 Year
  Sex: Male

DRUGS (2)
  1. VOLTAREN SUP [Suspect]
     Active Substance: DICLOFENAC SODIUM
     Dosage: UNK
     Route: 054
  2. VOLTAREN SUP [Suspect]
     Active Substance: DICLOFENAC SODIUM
     Indication: PRODUCT USED FOR UNKNOWN INDICATION
     Dosage: UNK
     Route: 054

REACTIONS (9)
  - Pyelonephritis [Unknown]
  - Rash [Unknown]
  - Intestinal haemorrhage [Unknown]
  - Constipation [Unknown]
  - Skin discolouration [Unknown]
  - Pyrexia [Unknown]
  - Bladder cancer [Unknown]
  - General physical condition abnormal [Unknown]
  - Pruritus [Unknown]
